FAERS Safety Report 5421678-X (Version None)
Quarter: 2007Q3

REPORT INFORMATION
  Report Type: 
  Country: None (occurrence: None)
  Receive Date: 20070724
  Receipt Date: 20070301
  Transmission Date: 20080115
  Serious: Yes (Hospitalization, Other)
  Sender: FDA-Public Use
  Company Number: 07-000482

PATIENT
  Age: 48 Year
  Sex: Female
  Weight: 104.3 kg

DRUGS (4)
  1. FEMHRT [Suspect]
     Indication: MENOPAUSAL SYMPTOMS
     Dosage: 1MG/5CMG, QD, ORAL, 5/1000 UG
     Route: 048
     Dates: start: 20040901, end: 20040901
  2. FEMHRT [Suspect]
     Indication: MENOPAUSAL SYMPTOMS
     Dosage: 1MG/5CMG, QD, ORAL, 5/1000 UG
     Route: 048
     Dates: start: 20051101
  3. MULTIVITAMINS (ASCORBIC ACID, ERGOCALCIFEROL, FOLIC ACID, NOCOTINAMIDE [Concomitant]
  4. COUMADIN [Concomitant]

REACTIONS (2)
  - CHOLELITHIASIS [None]
  - PULMONARY EMBOLISM [None]
